FAERS Safety Report 6375662-2 (Version None)
Quarter: 2009Q3

REPORT INFORMATION
  Report Type: 
  Country: None (occurrence: None)
  Receive Date: 20090921
  Receipt Date: 20090904
  Transmission Date: 20100115
  Serious: Yes (Life-Threatening, Hospitalization, Other)
  Sender: FDA-Public Use
  Company Number: MIN-00540

PATIENT
  Age: 38 Year
  Sex: Female

DRUGS (6)
  1. MINOCYCLINE [Suspect]
     Indication: ACNE
  2. TRIAMCINOLONE [Suspect]
     Indication: DRUG RASH WITH EOSINOPHILIA AND SYSTEMIC SYMPTOMS
     Dosage: APPLIED  TOPICALLY TO WHOLE BODY TWICE DAILY
     Route: 061
  3. DEXAMETHASONE 0.5MG TAB [Suspect]
     Indication: DRUG RASH WITH EOSINOPHILIA AND SYSTEMIC SYMPTOMS
     Dosage: 10 MG, INTRAVENOUSLY TWICE DAILY
     Route: 042
  4. MONTELUKAST [Concomitant]
  5. QUINAPRIL [Concomitant]
  6. HYDROCHLOROTHIAZIDE [Concomitant]

REACTIONS (8)
  - BLOOD THYROID STIMULATING HORMONE DECREASED [None]
  - DRUG RASH WITH EOSINOPHILIA AND SYSTEMIC SYMPTOMS [None]
  - HAEMATURIA [None]
  - LYMPHADENOPATHY [None]
  - MYOCARDITIS [None]
  - THYROXINE FREE INCREASED [None]
  - TRI-IODOTHYRONINE FREE INCREASED [None]
  - TYPE 2 DIABETES MELLITUS [None]
